FAERS Safety Report 15515721 (Version 2)
Quarter: 2018Q4

REPORT INFORMATION
  Report Type: Spontaneous
  Country: US (occurrence: US)
  Receive Date: 20181017
  Receipt Date: 20181022
  Transmission Date: 20190205
  Serious: No
  Sender: FDA-Public Use
  Company Number: US-TEVA-2018-US-963183

PATIENT
  Sex: Female

DRUGS (1)
  1. QVAR REDIHALER [Suspect]
     Active Substance: BECLOMETHASONE DIPROPIONATE
     Dosage: 1 PUFF TWICE A DAY
     Route: 065

REACTIONS (4)
  - Hypoaesthesia [Unknown]
  - Product substitution issue [Unknown]
  - Foreign body in respiratory tract [Unknown]
  - Sleep disorder [Unknown]
